FAERS Safety Report 16117600 (Version 2)
Quarter: 2019Q1

REPORT INFORMATION
  Report Type: Spontaneous
  Country: IT (occurrence: IT)
  Receive Date: 20190326
  Receipt Date: 20190330
  Transmission Date: 20190418
  Serious: Yes (Hospitalization)
  Sender: FDA-Public Use
  Company Number: PHHY2019IT065977

PATIENT
  Age: 55 Year
  Sex: Female

DRUGS (10)
  1. SPORANOX [Suspect]
     Active Substance: ITRACONAZOLE
     Indication: DRUG ABUSE
     Dosage: 10 DF, UNK (TOTAL)
     Route: 048
     Dates: start: 20190304, end: 20190304
  2. BREXIN (PIROXICAM BETADEX) [Suspect]
     Active Substance: PIROXICAM BETADEX
     Indication: DRUG ABUSE
     Dosage: 12 DF, UNK (TOTAL)
     Route: 048
     Dates: start: 20190304, end: 20190304
  3. AUGMENTIN [Suspect]
     Active Substance: AMOXICILLIN\CLAVULANATE POTASSIUM
     Indication: DRUG ABUSE
     Dosage: 12 DF, UNK (TOTAL)
     Route: 048
     Dates: start: 20190304, end: 20190304
  4. NEO-FURADANTIN [Suspect]
     Active Substance: NITROFURANTOIN
     Indication: DRUG ABUSE
     Dosage: 20 DF, UNK
     Route: 048
     Dates: start: 20190304, end: 20190304
  5. PARACODINA [Suspect]
     Active Substance: ASPIRIN\CAFFEINE\DIHYDROCODEINE BITARTRATE
     Indication: DRUG ABUSE
     Dosage: 1 DF, UNK (TOTAL)
     Route: 048
     Dates: start: 20190304, end: 20190304
  6. DEFLAN [Suspect]
     Active Substance: DEFLAZACORT
     Indication: DRUG ABUSE
     Dosage: 10 MG, UNK
     Route: 048
     Dates: start: 20190304, end: 20190304
  7. BRUFEN [Suspect]
     Active Substance: IBUPROFEN
     Indication: DRUG ABUSE
     Dosage: 30 DF, UNK (TOTAL)
     Route: 048
     Dates: start: 20190304, end: 20190304
  8. DEURSIL [Suspect]
     Active Substance: URSODIOL
     Indication: DRUG ABUSE
     Dosage: 5 DF, UNK (TOTAL)
     Route: 048
     Dates: start: 20190304, end: 20190304
  9. DELTACORTENE [Suspect]
     Active Substance: PREDNISONE
     Indication: DRUG ABUSE
     Dosage: 25 DF, UNK (TOTAL)
     Route: 048
     Dates: start: 20190304, end: 20190304
  10. PANTOPRAZOLE [Suspect]
     Active Substance: PANTOPRAZOLE
     Indication: DRUG ABUSE
     Dosage: 140 DF, UNK
     Route: 048
     Dates: start: 20190304, end: 20190304

REACTIONS (4)
  - Sopor [Recovered/Resolved]
  - Drug abuse [Recovered/Resolved]
  - Aphasia [None]
  - Aphasia [Recovered/Resolved]

NARRATIVE: CASE EVENT DATE: 20190304
